FAERS Safety Report 10654528 (Version 1)
Quarter: 2014Q4

REPORT INFORMATION
  Report Type: Report from Study
  Country: PR (occurrence: PR)
  Receive Date: 20141216
  Receipt Date: 20141216
  Transmission Date: 20150529
  Serious: Yes (Other)
  Sender: FDA-Public Use
  Company Number: PR-BAYER-2014-182470

PATIENT
  Age: 69 Year
  Sex: Male

DRUGS (1)
  1. STIVARGA [Suspect]
     Active Substance: REGORAFENIB
     Indication: NEOPLASM MALIGNANT
     Dosage: DAILY DOSE 120 MG
     Route: 048
     Dates: start: 20141010, end: 20141110

REACTIONS (2)
  - Blood urine present [None]
  - Pancreatitis [None]

NARRATIVE: CASE EVENT DATE: 201410
